FAERS Safety Report 5926689-3 (Version None)
Quarter: 2008Q4

REPORT INFORMATION
  Report Type: 
  Country: None (occurrence: None)
  Receive Date: 20081017
  Receipt Date: 20081001
  Transmission Date: 20090506
  Serious: Yes (Other)
  Sender: FDA-Public Use
  Company Number: 2008US002669

PATIENT
  Age: 1 Week
  Sex: Female
  Weight: 0.7 kg

DRUGS (3)
  1. AMBISOME [Suspect]
     Indication: SYSTEMIC CANDIDA
     Dosage: 26.5 MG/KG
  2. VANCOMYCIN [Concomitant]
  3. GENTAMYCIN (GENTAMYCIN) [Concomitant]

REACTIONS (3)
  - MEDICATION ERROR [None]
  - NO ADVERSE EVENT [None]
  - OVERDOSE [None]
